FAERS Safety Report 12193401 (Version 2)
Quarter: 2016Q2

REPORT INFORMATION
  Report Type: Spontaneous
  Country: US (occurrence: US)
  Receive Date: 20160320
  Receipt Date: 20160511
  Transmission Date: 20160815
  Serious: Yes (Hospitalization, Other)
  Sender: FDA-Public Use
  Company Number: US-ENDO PHARMACEUTICALS INC.-2016-001848

PATIENT
  Sex: Male
  Weight: 69.01 kg

DRUGS (1)
  1. PHENOBARBITAL. [Suspect]
     Active Substance: PHENOBARBITAL
     Indication: GENERALISED TONIC-CLONIC SEIZURE
     Route: 048

REACTIONS (2)
  - Squamous cell carcinoma of lung [Unknown]
  - Lung neoplasm surgery [Recovered/Resolved]

NARRATIVE: CASE EVENT DATE: 2001
